FAERS Safety Report 24145833 (Version 3)
Quarter: 2025Q2

REPORT INFORMATION
  Report Type: Spontaneous
  Country: US (occurrence: US)
  Receive Date: 20240729
  Receipt Date: 20250408
  Transmission Date: 20250717
  Serious: Yes (Other)
  Sender: CATALYST PHARMA
  Company Number: US-CATALYST PHARMACEUTICALS, INC-US-CATA-24-00748

PATIENT
  Sex: Male

DRUGS (4)
  1. FYCOMPA [Suspect]
     Active Substance: PERAMPANEL
     Indication: Epilepsy
     Route: 048
     Dates: start: 20170508
  2. FYCOMPA [Suspect]
     Active Substance: PERAMPANEL
     Dosage: 1 TABLET (12 MG) EVERY NIGHT AT BEDTIME
     Route: 048
  3. VIMPAT [Suspect]
     Active Substance: LACOSAMIDE
     Indication: Epilepsy
     Route: 065
  4. CYGNA [Concomitant]
     Indication: Product used for unknown indication
     Route: 065

REACTIONS (6)
  - Neurosurgery [Unknown]
  - Seizure [Not Recovered/Not Resolved]
  - Seizure [Not Recovered/Not Resolved]
  - Memory impairment [Unknown]
  - Animal-assisted therapy [Unknown]
  - Off label use [Unknown]

NARRATIVE: CASE EVENT DATE: 20180101
